FAERS Safety Report 8114144-4 (Version None)
Quarter: 2012Q1

REPORT INFORMATION
  Report Type: 
  Country: None (occurrence: None)
  Receive Date: 20120204
  Receipt Date: 20120123
  Transmission Date: 20120608
  Serious: Yes (Other)
  Sender: FDA-Public Use
  Company Number: US-MYLANLABS-2012S1002016

PATIENT
  Sex: Male

DRUGS (7)
  1. SERTRALINE HYDROCHLORIDE [Concomitant]
     Route: 048
  2. LORAZEPAM [Suspect]
     Dosage: AS-NEEDED
     Route: 048
  3. WARFARIN SODIUM [Concomitant]
     Route: 048
  4. FUROSEMIDE [Concomitant]
     Route: 048
  5. POTASSIUM [Concomitant]
     Route: 048
  6. ACETAMINOPHEN [Concomitant]
     Dosage: AS NEEDED
     Route: 048
  7. DIGOXIN [Concomitant]
     Route: 048

REACTIONS (3)
  - SUBDURAL HAEMATOMA [None]
  - FALL [None]
  - ALCOHOL INTERACTION [None]
